FAERS Safety Report 9024515 (Version 1)
Quarter: 2012Q4

REPORT INFORMATION
  Report Type: Spontaneous
  Country: PT (occurrence: None)
  Receive Date: 20121101
  Receipt Date: 20121101
  Transmission Date: 20130627
  Serious: Yes (Other)
  Sender: FDA-Public Use
  Company Number: FK201203191

PATIENT
  Age: 93 Year
  Sex: Female
  Weight: 58 kg

DRUGS (1)
  1. ANASTROZOLE [Suspect]
     Indication: BREAST NEOPLASM
     Route: 048
     Dates: start: 20120922

REACTIONS (4)
  - Erythema [None]
  - Conjunctival hyperaemia [None]
  - Face oedema [None]
  - Eyelid oedema [None]
